FAERS Safety Report 11685141 (Version 1)
Quarter: 2015Q4

REPORT INFORMATION
  Report Type: Spontaneous
  Country: US (occurrence: None)
  Receive Date: 20151029
  Receipt Date: 20151029
  Transmission Date: 20160304
  Serious: Yes (Death, Life-Threatening, Hospitalization)
  Sender: FDA-Public Use
  Company Number: None

PATIENT
  Age: 76 Year
  Sex: Female
  Weight: 71.7 kg

DRUGS (8)
  1. LUNESTA [Concomitant]
     Active Substance: ESZOPICLONE
  2. LISINOPRIL-HCTZ [Concomitant]
     Active Substance: HYDROCHLOROTHIAZIDE\LISINOPRIL
  3. OMEPRAZOLE. [Concomitant]
     Active Substance: OMEPRAZOLE
  4. RESTASIS [Concomitant]
     Active Substance: CYCLOSPORINE
  5. CLOBETASOL [Concomitant]
     Active Substance: CLOBETASOL
  6. COREG [Concomitant]
     Active Substance: CARVEDILOL
  7. WARFARIN 2MG [Suspect]
     Active Substance: WARFARIN
     Indication: DEEP VEIN THROMBOSIS
     Dosage: SINCE 2010
     Route: 048
  8. VITAMIN D3 [Concomitant]
     Active Substance: CHOLECALCIFEROL

REACTIONS (5)
  - Subdural haematoma [None]
  - Fall [None]
  - International normalised ratio abnormal [None]
  - Head injury [None]
  - Joint injury [None]

NARRATIVE: CASE EVENT DATE: 20150924
